FAERS Safety Report 23929961 (Version 2)
Quarter: 2024Q2

REPORT INFORMATION
  Report Type: Report from Study
  Country: CA (occurrence: CA)
  Receive Date: 20240601
  Receipt Date: 20240604
  Transmission Date: 20240715
  Serious: Yes (Other)
  Sender: FDA-Public Use
  Company Number: CA-JNJFOC-20240577335

PATIENT
  Age: 15 Year
  Sex: Male

DRUGS (2)
  1. REMICADE [Suspect]
     Active Substance: INFLIXIMAB
     Indication: Colitis ulcerative
     Route: 041
     Dates: start: 20240523
  2. REMICADE [Suspect]
     Active Substance: INFLIXIMAB
     Route: 041
     Dates: start: 20081213

REACTIONS (4)
  - Colitis ulcerative [Unknown]
  - Drug level decreased [Unknown]
  - Incorrect drug administration rate [Unknown]
  - Off label use [Unknown]

NARRATIVE: CASE EVENT DATE: 20240523
